FAERS Safety Report 9856162 (Version 2)
Quarter: 2014Q1

REPORT INFORMATION
  Report Type: Spontaneous
  Country: FI (occurrence: FI)
  Receive Date: 20140130
  Receipt Date: 20140311
  Transmission Date: 20141002
  Serious: Yes (Other)
  Sender: FDA-Public Use
  Company Number: PHHY2014FI010443

PATIENT
  Sex: Female

DRUGS (1)
  1. LESCOL DEPOT [Suspect]
     Dosage: 80 MG, QD
     Dates: end: 201401

REACTIONS (1)
  - Muscle atrophy [Not Recovered/Not Resolved]
